FAERS Safety Report 8849278 (Version 1)
Quarter: 2012Q4

REPORT INFORMATION
  Report Type: Spontaneous
  Country: US (occurrence: None)
  Receive Date: 20121018
  Receipt Date: 20121018
  Transmission Date: 20130627
  Serious: No
  Sender: FDA-Public Use
  Company Number: None

PATIENT
  Age: 30 Year
  Weight: 77.57 kg

DRUGS (2)
  1. ZOLOFT (SERTRALINE) [Suspect]
     Indication: DEPRESSION
     Dosage: 100 qd
  2. PROZAC [Concomitant]

REACTIONS (2)
  - Headache [None]
  - Product substitution issue [None]
